FAERS Safety Report 10243237 (Version 1)
Quarter: 2014Q2

REPORT INFORMATION
  Report Type: Spontaneous
  Country: US (occurrence: None)
  Receive Date: 20140616
  Receipt Date: 20140616
  Transmission Date: 20141212
  Serious: Yes (Hospitalization)
  Sender: FDA-Public Use
  Company Number: COM-002334

PATIENT
  Age: 52 Year
  Sex: Female
  Weight: 129.73 kg

DRUGS (1)
  1. ISOPROPYL ALCOHOL 91 PERCENT [Suspect]

REACTIONS (4)
  - Accidental exposure to product [None]
  - Eye burns [None]
  - Vision blurred [None]
  - Impaired healing [None]
